FAERS Safety Report 5334526-3 (Version None)
Quarter: 2007Q2

REPORT INFORMATION
  Report Type: 
  Country: None (occurrence: None)
  Receive Date: 20070525
  Receipt Date: 20070516
  Transmission Date: 20071010
  Serious: Yes (Hospitalization)
  Sender: FDA-Public Use
  Company Number: JP-BRISTOL-MYERS SQUIBB COMPANY-13791678

PATIENT
  Age: 71 Year
  Sex: Female

DRUGS (12)
  1. CARBIDOPA AND LEVODOPA [Suspect]
     Indication: PARKINSON'S DISEASE
     Route: 048
  2. ASPIRIN [Suspect]
     Indication: CEREBROVASCULAR ACCIDENT PROPHYLAXIS
     Route: 048
  3. DOMIN [Suspect]
     Indication: PARKINSON'S DISEASE
     Route: 048
  4. D-ALFA [Suspect]
     Indication: OSTEOPOROSIS
     Route: 048
  5. CABASER [Suspect]
     Route: 048
  6. ALDIOXA [Concomitant]
  7. SYMMETREL [Concomitant]
  8. BUFFERIN [Concomitant]
  9. ETIZOLAM [Concomitant]
  10. TRIAZOLAM [Concomitant]
  11. TRIHEXYPHENIDYL HCL [Concomitant]
  12. MYSLEE [Concomitant]

REACTIONS (1)
  - DYSPHONIA [None]
